FAERS Safety Report 7074261-7 (Version None)
Quarter: 2010Q4

REPORT INFORMATION
  Report Type: 
  Country: None (occurrence: None)
  Receive Date: 20101029
  Receipt Date: 20101022
  Transmission Date: 20110411
  Serious: Yes (Death, Other)
  Sender: FDA-Public Use
  Company Number: US-US-EMD SERONO, INC.-7024248

PATIENT
  Sex: Female

DRUGS (2)
  1. NOVANTRONE [Suspect]
     Dates: start: 20080707, end: 20080707
  2. NOVANTRONE [Suspect]
     Dates: start: 20080804, end: 20080804

REACTIONS (2)
  - DEATH [None]
  - LYMPHOMA [None]
